FAERS Safety Report 18415811 (Version 1)
Quarter: 2020Q4

REPORT INFORMATION
  Report Type: Spontaneous
  Country: CN (occurrence: CN)
  Receive Date: 20201022
  Receipt Date: 20201022
  Transmission Date: 20210114
  Serious: Yes (Hospitalization)
  Sender: FDA-Public Use
  Company Number: CN-ELI_LILLY_AND_COMPANY-CN202010004969

PATIENT
  Age: 41 Year
  Sex: Female
  Weight: 55 kg

DRUGS (3)
  1. HUMULIN R [Suspect]
     Active Substance: INSULIN HUMAN
     Dosage: 12 U, EACH EVENING (EACH NIGHT)
     Route: 058
     Dates: start: 2005
  2. HUMULIN R [Suspect]
     Active Substance: INSULIN HUMAN
     Indication: TYPE 1 DIABETES MELLITUS
     Dosage: 18 U, EACH MORNING
     Route: 058
     Dates: start: 2005
  3. INSULIN [Concomitant]
     Active Substance: INSULIN NOS
     Indication: TYPE 1 DIABETES MELLITUS
     Dosage: UNK UNK, UNKNOWN
     Route: 058

REACTIONS (3)
  - Hyperthyroidism [Unknown]
  - Blood glucose fluctuation [Unknown]
  - Cataract [Unknown]
